FAERS Safety Report 16534003 (Version 1)
Quarter: 2019Q3

REPORT INFORMATION
  Report Type: Spontaneous
  Country: SI (occurrence: SI)
  Receive Date: 20190705
  Receipt Date: 20190705
  Transmission Date: 20191004
  Serious: Yes (Hospitalization)
  Sender: FDA-Public Use
  Company Number: SI-JNJFOC-20190629758

PATIENT
  Age: 82 Year
  Sex: Female

DRUGS (12)
  1. ACETYLSALICYLIC ACID [Suspect]
     Active Substance: ASPIRIN
     Indication: MYOCARDIAL ISCHAEMIA
     Dosage: 100 MG
     Route: 048
     Dates: end: 201902
  2. CALCIUM CARBONATE. [Concomitant]
     Active Substance: CALCIUM CARBONATE
     Dosage: 1 MG, OM
  3. ALPHA D3 [Concomitant]
     Active Substance: ALFACALCIDOL
     Dosage: 0.25 MG, QD
  4. MEDROL [Concomitant]
     Active Substance: METHYLPREDNISOLONE
  5. ACIPAN [Concomitant]
     Active Substance: PANTOPRAZOLE SODIUM
     Dosage: 40 MG, OM
  6. ATORIS [Concomitant]
     Active Substance: ATORVASTATIN CALCIUM
     Dosage: 10 MG, HS
  7. PRIMOTREN [Concomitant]
     Active Substance: SULFAMETHOXAZOLE\TRIMETHOPRIM
     Dosage: UNK UNK, OW
  8. XARELTO [Suspect]
     Active Substance: RIVAROXABAN
     Indication: ATRIAL FIBRILLATION
     Dosage: UNK
     Route: 065
     Dates: start: 20190114, end: 201902
  9. FRAGMIN [Concomitant]
     Active Substance: DALTEPARIN SODIUM
     Dosage: 5000 IU
     Route: 058
  10. PLIVIT D3 [Concomitant]
     Active Substance: CHOLECALCIFEROL
     Dosage: UNK
  11. NEBILET [Concomitant]
     Active Substance: NEBIVOLOL
     Dosage: 5 MG, OM
  12. CORDARONE [Concomitant]
     Active Substance: AMIODARONE HYDROCHLORIDE
     Dosage: 400 MG

REACTIONS (1)
  - Renal impairment [Unknown]
